FAERS Safety Report 12550579 (Version 2)
Quarter: 2016Q3

REPORT INFORMATION
  Report Type: Spontaneous
  Country: JP (occurrence: JP)
  Receive Date: 20160712
  Receipt Date: 20160805
  Transmission Date: 20161109
  Serious: Yes (Hospitalization, Other)
  Sender: FDA-Public Use
  Company Number: JP-GILEAD-2016-0222426

PATIENT
  Age: 84 Year
  Sex: Female
  Weight: 53.8 kg

DRUGS (11)
  1. CELESTANA [Concomitant]
     Dosage: UNK
     Dates: start: 20160208, end: 20160417
  2. HARVONI [Suspect]
     Active Substance: LEDIPASVIR\SOFOSBUVIR
     Indication: CHRONIC HEPATITIS C
     Dosage: UNK
     Route: 048
     Dates: start: 20160329, end: 20160526
  3. HARVONI [Suspect]
     Active Substance: LEDIPASVIR\SOFOSBUVIR
     Dosage: UNK
     Route: 048
     Dates: start: 20160617
  4. MAGMITT [Concomitant]
     Active Substance: MAGNESIUM OXIDE
     Indication: CONSTIPATION
     Dosage: 250 MG, TID
     Route: 048
     Dates: start: 20160208
  5. DIART [Concomitant]
     Active Substance: AZOSEMIDE
     Indication: OEDEMA DUE TO CARDIAC DISEASE
     Dosage: 15 MG, QD
     Route: 048
     Dates: start: 20160222
  6. GLAKAY [Concomitant]
     Active Substance: MENATETRENONE
     Indication: OSTEOPOROSIS
     Dosage: 15 MG, QD
     Route: 048
     Dates: start: 20160307
  7. LYRICA [Concomitant]
     Active Substance: PREGABALIN
     Indication: POST HERPETIC NEURALGIA
     Dosage: 25 MG, QID
     Route: 048
     Dates: start: 20160208
  8. SENNA [Concomitant]
     Active Substance: SENNA LEAF\SENNOSIDES\SENNOSIDES A AND B
     Indication: HYPERTENSION
     Dosage: 0.5 G, QD
     Route: 048
     Dates: start: 20160208
  9. CONIEL [Concomitant]
     Active Substance: BENIDIPINE HYDROCHLORIDE
     Indication: HYPERTENSION
     Dosage: 4 MG, QD
     Route: 048
     Dates: start: 20160208
  10. ARGAMATE [Concomitant]
     Active Substance: CALCIUM POLYSTYRENE SULFONATE
     Dosage: UNK
     Dates: start: 20160208
  11. LANSOPRAZOLE. [Concomitant]
     Active Substance: LANSOPRAZOLE
     Indication: GASTROOESOPHAGEAL REFLUX DISEASE
     Dosage: 30 MG, QD
     Route: 048
     Dates: start: 20160208

REACTIONS (4)
  - Pneumonia bacterial [Recovered/Resolved]
  - Disseminated intravascular coagulation [Recovered/Resolved]
  - Pyelonephritis [Recovering/Resolving]
  - Systemic inflammatory response syndrome [Recovered/Resolved]

NARRATIVE: CASE EVENT DATE: 20160522
